FAERS Safety Report 5827041-1 (Version None)
Quarter: 2008Q3

REPORT INFORMATION
  Report Type: 
  Country: None (occurrence: None)
  Receive Date: 20080730
  Receipt Date: 20080728
  Transmission Date: 20090109
  Serious: Yes (Other)
  Sender: FDA-Public Use
  Company Number: A0735842A

PATIENT
  Age: 50 Year
  Sex: Male
  Weight: 67.7 kg

DRUGS (2)
  1. ADVAIR DISKUS 100/50 [Suspect]
     Indication: COUGH
     Dosage: 2PUFF SINGLE DOSE
     Route: 055
     Dates: start: 20080527, end: 20080527
  2. DOXYCYCLINE HCL [Suspect]
     Indication: COUGH
     Dosage: 100MG TWICE PER DAY
     Route: 048
     Dates: start: 20080527, end: 20080606

REACTIONS (2)
  - OROPHARYNGEAL BLISTERING [None]
  - STEVENS-JOHNSON SYNDROME [None]
